FAERS Safety Report 8826780 (Version 2)
Quarter: 2012Q4

REPORT INFORMATION
  Report Type: 
  Country: FR (occurrence: FR)
  Receive Date: 20121005
  Receipt Date: 20121130
  Transmission Date: 20130627
  Serious: Yes (Death, Hospitalization)
  Sender: FDA-Public Use
  Company Number: FR-GLAXOSMITHKLINE-B0833852A

PATIENT
  Age: 65 Year
  Sex: Female
  Weight: 65 kg

DRUGS (5)
  1. ARIXTRA [Suspect]
     Indication: THROMBOPHLEBITIS
     Dosage: 7.5MG Twice per day
     Route: 058
     Dates: start: 20120726, end: 20120810
  2. COUMADINE [Suspect]
     Indication: THROMBOPHLEBITIS
     Route: 048
     Dates: start: 20120726, end: 20120810
  3. LAMALINE [Concomitant]
     Indication: PAIN IN EXTREMITY
     Dosage: 4CAP per day
     Route: 048
  4. ABILIFY [Concomitant]
     Indication: DEPRESSION
     Dosage: 10MG Per day
     Route: 048
  5. TAHOR [Concomitant]
     Indication: HYPERCHOLESTEROLAEMIA
     Dosage: 40MG Per day
     Route: 048

REACTIONS (5)
  - Shock haemorrhagic [Fatal]
  - Muscle haemorrhage [Fatal]
  - Pain in extremity [Fatal]
  - Cardiac arrest [Fatal]
  - Drug interaction [Unknown]
